FAERS Safety Report 12852026 (Version 2)
Quarter: 2016Q4

REPORT INFORMATION
  Report Type: Spontaneous
  Country: TW (occurrence: TW)
  Receive Date: 20161017
  Receipt Date: 20161219
  Transmission Date: 20170207
  Serious: Yes (Death, Other)
  Sender: FDA-Public Use
  Company Number: PHHY2016TW140951

PATIENT
  Age: 23 Year
  Sex: Female

DRUGS (2)
  1. CICLOSPORIN [Suspect]
     Active Substance: CYCLOSPORINE
     Indication: STEM CELL TRANSPLANT
     Dosage: UNK
     Route: 065
  2. METHOTREXATE. [Suspect]
     Active Substance: METHOTREXATE
     Indication: STEM CELL TRANSPLANT
     Route: 065

REACTIONS (6)
  - Lung infiltration [Fatal]
  - Acute graft versus host disease [Unknown]
  - Graft versus host disease [Fatal]
  - Bone marrow transplant rejection [Unknown]
  - Lung infection [Fatal]
  - Bacterial infection [Fatal]
